FAERS Safety Report 9495948 (Version 1)
Quarter: 2013Q3

REPORT INFORMATION
  Report Type: Spontaneous
  Country: JP (occurrence: JP)
  Receive Date: 20130904
  Receipt Date: 20130904
  Transmission Date: 20140515
  Serious: Yes (Hospitalization, Other)
  Sender: FDA-Public Use
  Company Number: JP-PAR PHARMACEUTICAL, INC-2013SCPR006141

PATIENT
  Sex: 0

DRUGS (5)
  1. LAMOTRIGINE [Suspect]
     Indication: DEPRESSIVE SYMPTOM
     Dosage: 200 MG, / DAY
     Route: 065
  2. LAMOTRIGINE [Suspect]
     Dosage: 50 MG, / DAY. DOSAGE WAS INCREASED BY 50MG/WK
     Route: 065
  3. ARIPIPRAZOLE [Concomitant]
     Indication: DEPRESSIVE SYMPTOM
     Dosage: 6 MG, / DAY
     Route: 065
  4. LITHIUM [Concomitant]
     Indication: DEPRESSIVE SYMPTOM
     Dosage: 400 MG, / DAY
     Route: 065
  5. SERTRALINE [Concomitant]
     Indication: DEPRESSIVE SYMPTOM
     Dosage: 25 MG, / DAY
     Route: 065

REACTIONS (1)
  - Neuroleptic malignant syndrome [Recovering/Resolving]
